FAERS Safety Report 9686674 (Version 1)
Quarter: 2013Q4

REPORT INFORMATION
  Report Type: Spontaneous
  Country: EG (occurrence: EG)
  Receive Date: 20131113
  Receipt Date: 20131113
  Transmission Date: 20140711
  Serious: Yes (Other)
  Sender: FDA-Public Use
  Company Number: EG-PFIZER INC-2013321069

PATIENT
  Age: 26 Year
  Sex: Female

DRUGS (2)
  1. CEFOBID [Suspect]
     Indication: PROPHYLAXIS
     Dosage: 2 G, SINGLE
  2. CEFOBID [Suspect]
     Dosage: 1 G, 2X/DAY

REACTIONS (3)
  - Puerperal infection [Unknown]
  - Pyrexia [Unknown]
  - Inflammation [Unknown]
